FAERS Safety Report 8838898 (Version 2)
Quarter: 2013Q1

REPORT INFORMATION
  Report Type: Spontaneous
  Country: DE (occurrence: DE)
  Receive Date: 20121015
  Receipt Date: 20130305
  Transmission Date: 20140127
  Serious: Yes (Other)
  Sender: FDA-Public Use
  Company Number: DE-AMGEN-DEUSP2012065068

PATIENT
  Age: 47 Year
  Sex: Female

DRUGS (3)
  1. ENBREL [Suspect]
     Indication: PSORIATIC ARTHROPATHY
     Dosage: 25 MG, WEEKLY
     Dates: start: 20120605, end: 2012
  2. ENBREL [Suspect]
     Dosage: 25 MG, WEEKLY
     Dates: start: 20121005, end: 20130208
  3. CORTISONE [Suspect]
     Indication: INFECTION
     Dosage: UNK
     Dates: start: 2012, end: 2012

REACTIONS (4)
  - Rheumatoid arthritis [Not Recovered/Not Resolved]
  - Drug interaction [Recovered/Resolved]
  - Infection [Unknown]
  - Influenza [Not Recovered/Not Resolved]
